FAERS Safety Report 11762012 (Version 1)
Quarter: 2015Q4

REPORT INFORMATION
  Report Type: Spontaneous
  Country: US (occurrence: US)
  Receive Date: 20151120
  Receipt Date: 20151120
  Transmission Date: 20160304
  Serious: No
  Sender: FDA-Public Use
  Company Number: US-ELI_LILLY_AND_COMPANY-US201301001987

PATIENT
  Age: 68 Year
  Sex: Female

DRUGS (2)
  1. FORTEO [Suspect]
     Active Substance: TERIPARATIDE
     Indication: OSTEOPOROSIS
     Dosage: 20 UG, QD
     Dates: start: 20130102
  2. B50 [Concomitant]
     Indication: INTRINSIC FACTOR DEFICIENCY
     Dosage: UNK, UNKNOWN

REACTIONS (12)
  - Pulmonary congestion [Unknown]
  - Influenza [Unknown]
  - Fatigue [Unknown]
  - Productive cough [Unknown]
  - Injection site swelling [Unknown]
  - Injection site erythema [Unknown]
  - Asthenia [Unknown]
  - Crying [Unknown]
  - Injection site pain [Not Recovered/Not Resolved]
  - Feeling abnormal [Unknown]
  - Depressed mood [Unknown]
  - Injection site mass [Unknown]

NARRATIVE: CASE EVENT DATE: 201301
